FAERS Safety Report 10533917 (Version 1)
Quarter: 2014Q4

REPORT INFORMATION
  Report Type: Spontaneous
  Country: US (occurrence: None)
  Receive Date: 20141020
  Receipt Date: 20141020
  Transmission Date: 20150529
  Serious: Yes (Death)
  Sender: FDA-Public Use
  Company Number: 2014STPI000524

PATIENT
  Age: 53 Year
  Sex: Female

DRUGS (1)
  1. MATULANE [Suspect]
     Active Substance: PROCARBAZINE HYDROCHLORIDE
     Indication: HODGKIN^S DISEASE
     Route: 048
     Dates: start: 20140814, end: 20140909

REACTIONS (2)
  - Cardiac arrest [None]
  - Cardiac failure congestive [None]

NARRATIVE: CASE EVENT DATE: 20140909
